FAERS Safety Report 5885951-3 (Version None)
Quarter: 2008Q3

REPORT INFORMATION
  Report Type: 
  Country: None (occurrence: None)
  Receive Date: 20080917
  Receipt Date: 20080814
  Transmission Date: 20090109
  Serious: Yes (Hospitalization)
  Sender: FDA-Public Use
  Company Number: DK-WYE-H05914408

PATIENT
  Sex: Female
  Weight: 65.5 kg

DRUGS (10)
  1. PANTOPRAZOLE SODIUM [Suspect]
     Dosage: UNKNOWN
  2. ONDANSETRON [Interacting]
     Dosage: UNKNOWN
  3. VOGALENE [Interacting]
     Dosage: UNKNOWN
  4. DEXAMETHASONE [Interacting]
     Dosage: UNKNOWN
  5. CYTARABINE [Interacting]
     Dosage: UNKNOWN
  6. ETOPOSIDE [Interacting]
     Dosage: UNKNOWN
  7. ACICLODAN [Interacting]
     Dosage: UNKNOWN
  8. NOXAFIL [Interacting]
     Indication: HEPATOSPLENIC CANDIDIASIS
     Route: 048
     Dates: start: 20071019, end: 20080125
  9. ALLOPURINOL [Interacting]
     Dosage: UNKNOWN
     Route: 048
  10. KALEORID [Interacting]
     Dosage: 750 MG (FREQUENCY UNSPECIFIED)
     Route: 048

REACTIONS (2)
  - DRUG INTERACTION [None]
  - SINOATRIAL BLOCK [None]
